FAERS Safety Report 16739817 (Version 5)
Quarter: 2021Q3

REPORT INFORMATION
  Report Type: Spontaneous
  Country: IT (occurrence: IT)
  Receive Date: 20190826
  Receipt Date: 20210714
  Transmission Date: 20211014
  Serious: Yes (Life-Threatening, Hospitalization, Other)
  Sender: FDA-Public Use
  Company Number: IT-DRREDDYS-USA/ITL/19/0110222

PATIENT
  Age: 65 Year
  Sex: Male

DRUGS (1)
  1. IMATINIB MESYLATE TABLETS [Suspect]
     Active Substance: IMATINIB MESYLATE
     Indication: GASTROINTESTINAL STROMAL TUMOUR
     Route: 048

REACTIONS (7)
  - Eyelid ptosis [Recovered/Resolved]
  - Respiratory failure [Recovered/Resolved]
  - Dysphagia [Recovered/Resolved]
  - Dysphonia [Recovered/Resolved]
  - Posture abnormal [Recovered/Resolved]
  - Myasthenic syndrome [Recovered/Resolved]
  - Neuromyopathy [Recovered/Resolved]
